FAERS Safety Report 10638354 (Version 1)
Quarter: 2014Q4

REPORT INFORMATION
  Report Type: Spontaneous
  Country: US (occurrence: None)
  Receive Date: 20141204
  Receipt Date: 20141204
  Transmission Date: 20150529
  Serious: Yes (Other)
  Sender: FDA-Public Use
  Company Number: 201411125

PATIENT
  Age: 61 Year
  Sex: Male
  Weight: 99.79 kg

DRUGS (2)
  1. TESTIM [Suspect]
     Active Substance: TESTOSTERONE
     Indication: BLOOD TESTOSTERONE DECREASED
     Route: 061
     Dates: start: 2008
  2. WARFARIN (WARFARIN) [Concomitant]
     Active Substance: WARFARIN

REACTIONS (3)
  - Drug interaction [None]
  - Device malfunction [None]
  - Cardiac pacemaker battery replacement [None]

NARRATIVE: CASE EVENT DATE: 2010
